FAERS Safety Report 14261134 (Version 5)
Quarter: 2018Q3

REPORT INFORMATION
  Report Type: Other
  Country: IT (occurrence: IT)
  Receive Date: 20171207
  Receipt Date: 20180907
  Transmission Date: 20181010
  Serious: Yes (Other)
  Sender: FDA-Public Use
  Company Number: IT-MACLEODS PHARMACEUTICALS US LTD-MAC2017006475

PATIENT

DRUGS (1)
  1. LEVOFLOXACIN TABLET [Suspect]
     Active Substance: LEVOFLOXACIN
     Indication: CYSTITIS HAEMORRHAGIC
     Dosage: 1000 MG, SINGLE (TOTAL), FILM COATED TABLET
     Route: 048
     Dates: start: 20170925, end: 20170926

REACTIONS (10)
  - Tachypnoea [Unknown]
  - Retching [Recovering/Resolving]
  - Vertigo [Recovering/Resolving]
  - Cold sweat [Recovering/Resolving]
  - Drug intolerance [Recovering/Resolving]
  - Presyncope [Unknown]
  - Abdominal pain upper [Recovering/Resolving]
  - Postural tremor [Recovering/Resolving]
  - Hyperventilation [Unknown]
  - Tremor [Recovering/Resolving]

NARRATIVE: CASE EVENT DATE: 20170929
